FAERS Safety Report 8886166 (Version 1)
Quarter: 2012Q4

REPORT INFORMATION
  Report Type: 
  Country: FR (occurrence: FR)
  Receive Date: 20121105
  Receipt Date: 20121105
  Transmission Date: 20130627
  Serious: Yes (Hospitalization)
  Sender: FDA-Public Use
  Company Number: FR-BAXTER-2012BAX021748

PATIENT
  Age: 67 Year
  Sex: Female

DRUGS (2)
  1. HOLOXAN [Suspect]
     Indication: UTERINE CANCER
     Route: 042
     Dates: end: 20121003
  2. UROMITEXAN [Suspect]
     Indication: UTERINE CANCER
     Route: 042
     Dates: end: 20121003

REACTIONS (4)
  - Encephalopathy [Recovering/Resolving]
  - Myoclonus [None]
  - Renal failure [None]
  - Anxiety [None]
